FAERS Safety Report 15887028 (Version 1)
Quarter: 2019Q1

REPORT INFORMATION
  Report Type: Spontaneous
  Country: US (occurrence: US)
  Receive Date: 20190130
  Receipt Date: 20190130
  Transmission Date: 20190417
  Serious: No
  Sender: FDA-Public Use
  Company Number: US-TEVA-2019-US-995808

PATIENT
  Sex: Female

DRUGS (2)
  1. TIZANIDINE. [Suspect]
     Active Substance: TIZANIDINE
     Route: 065
  2. BACLOFEN. [Suspect]
     Active Substance: BACLOFEN
     Route: 065

REACTIONS (6)
  - Impaired work ability [Unknown]
  - Balance disorder [Unknown]
  - Fatigue [Unknown]
  - Lymphadenopathy [Unknown]
  - Asthenia [Unknown]
  - Enuresis [Unknown]
